FAERS Safety Report 7425217-3 (Version None)
Quarter: 2011Q2

REPORT INFORMATION
  Report Type: 
  Country: None (occurrence: None)
  Receive Date: 20110420
  Receipt Date: 20110406
  Transmission Date: 20111010
  Serious: Yes (Other)
  Sender: FDA-Public Use
  Company Number: CH-RANBAXY-2011RR-42914

PATIENT
  Age: 88 Year
  Sex: Female

DRUGS (7)
  1. PROPRANOLOL [Concomitant]
     Dosage: 50 MG, TID
  2. TORASEMID [Concomitant]
     Dosage: 10 MG, QD
  3. MORPHINE [Concomitant]
     Indication: PAIN IN EXTREMITY
  4. CALCIUM [Concomitant]
     Route: 048
  5. CLARITHROMYCIN [Suspect]
     Indication: BRONCHITIS
     Dosage: UNK
  6. ACENOCOUMAROL [Concomitant]
  7. SIMVASTATIN [Suspect]
     Dosage: 40 MG, QD

REACTIONS (4)
  - RHABDOMYOLYSIS [None]
  - RENAL IMPAIRMENT [None]
  - HEPATOCELLULAR INJURY [None]
  - DRUG INTERACTION [None]
